FAERS Safety Report 14150507 (Version 1)
Quarter: 2017Q4

REPORT INFORMATION
  Report Type: Spontaneous
  Country: DE (occurrence: DE)
  Receive Date: 20171101
  Receipt Date: 20171101
  Transmission Date: 20180321
  Serious: No
  Sender: FDA-Public Use
  Company Number: DE-JAZZ-2017-DE-008573

PATIENT
  Sex: Male

DRUGS (4)
  1. DEFITELIO [Suspect]
     Active Substance: DEFIBROTIDE SODIUM
     Indication: VENOOCCLUSIVE DISEASE
     Dosage: 25MG/KG, QD
     Route: 042
     Dates: start: 20170123, end: 20170213
  2. VALGANCICLOVIR                     /01542202/ [Concomitant]
     Indication: CYTOMEGALOVIRUS INFECTION
     Dosage: 450 MG, BID
     Route: 048
     Dates: start: 20170123, end: 20170310
  3. METHYLPREDNISOLONE. [Concomitant]
     Active Substance: METHYLPREDNISOLONE
     Indication: GRAFT VERSUS HOST DISEASE IN SKIN
     Dosage: 8 MG, BID
     Route: 048
     Dates: start: 20161210, end: 20170220
  4. MYFORTIC [Concomitant]
     Active Substance: MYCOPHENOLATE SODIUM
     Indication: GRAFT VERSUS HOST DISEASE IN SKIN
     Dosage: 360 MG, BID
     Route: 048
     Dates: start: 20170123, end: 20170220

REACTIONS (2)
  - Growth accelerated [Not Recovered/Not Resolved]
  - Hair growth abnormal [Not Recovered/Not Resolved]
